FAERS Safety Report 16017905 (Version 1)
Quarter: 2019Q1

REPORT INFORMATION
  Report Type: Spontaneous
  Country: US (occurrence: US)
  Receive Date: 20190201
  Receipt Date: 20190201
  Transmission Date: 20190418
  Serious: No
  Sender: FDA-Public Use
  Company Number: None

PATIENT
  Age: 51 Year
  Sex: Male

DRUGS (1)
  1. TEMOZOLOMIDE 180MG CAP [Suspect]
     Active Substance: TEMOZOLOMIDE
     Dosage: ?          OTHER FREQUENCY:OTHER;OTHER ROUTE:OTHER?
     Dates: start: 20181113, end: 20190201

REACTIONS (1)
  - Disease progression [None]

NARRATIVE: CASE EVENT DATE: 20190201
